FAERS Safety Report 17004901 (Version 1)
Quarter: 2019Q4

REPORT INFORMATION
  Report Type: Spontaneous
  Country: US (occurrence: US)
  Receive Date: 20191102
  Receipt Date: 20191102
  Transmission Date: 20200122
  Serious: Yes (Life-Threatening)
  Sender: FDA-Public Use
  Company Number: None

PATIENT
  Age: 57 Year
  Sex: Male
  Weight: 147 kg

DRUGS (1)
  1. ENOXAPARIN (GENERIC) [Suspect]
     Active Substance: ENOXAPARIN
     Indication: ATRIAL FIBRILLATION
     Route: 058
     Dates: start: 20191002, end: 20191027

REACTIONS (10)
  - Retroperitoneal haemorrhage [None]
  - Packed red blood cell transfusion [None]
  - Thrombocytopenia [None]
  - Perirenal haematoma [None]
  - Platelet transfusion [None]
  - Cardio-respiratory arrest [None]
  - Transfusion [None]
  - Anaemia [None]
  - Haemorrhage [None]
  - Nephrectomy [None]

NARRATIVE: CASE EVENT DATE: 20191027
